FAERS Safety Report 24073416 (Version 1)
Quarter: 2024Q3

REPORT INFORMATION
  Report Type: Spontaneous
  Country: US (occurrence: US)
  Receive Date: 20240710
  Receipt Date: 20240710
  Transmission Date: 20241016
  Serious: Yes (Hospitalization, Other)
  Sender: Unknown Manufacturer
  Company Number: US-ACELLA PHARMACEUTICALS, LLC-2024ALO00311

PATIENT
  Sex: Female
  Weight: 61.235 kg

DRUGS (6)
  1. NP THYROID [Suspect]
     Active Substance: LEVOTHYROXINE\LIOTHYRONINE
     Indication: Autoimmune thyroiditis
     Dosage: 30 MG, 1X/DAY (IN ADDITION TO 60 MG TABLET)
     Route: 048
     Dates: start: 2019
  2. NP THYROID [Suspect]
     Active Substance: LEVOTHYROXINE\LIOTHYRONINE
     Dosage: 45 MG (IN ADDITION TO 60 MG TABLET) ONCE IN A WHILE
  3. NP THYROID [Suspect]
     Active Substance: LEVOTHYROXINE\LIOTHYRONINE
     Dosage: 30 MG, 1X/DAY (IN ADDITION TO 60 MG TABLET)
     Route: 048
     Dates: start: 202406
  4. NP THYROID [Suspect]
     Active Substance: LEVOTHYROXINE\LIOTHYRONINE
     Indication: Autoimmune thyroiditis
     Dosage: 60 MG, 1X/DAY  (IN ADDITION TO 30 MG TABLET)
     Route: 048
     Dates: start: 2019
  5. NP THYROID [Suspect]
     Active Substance: LEVOTHYROXINE\LIOTHYRONINE
     Dosage: 60 MG, 1X/DAY  (IN ADDITION TO 30 MG TABLET)
     Route: 048
     Dates: start: 202406
  6. NP THYROID [Suspect]
     Active Substance: LEVOTHYROXINE\LIOTHYRONINE
     Dosage: TAKE AN EXTRA 15 MG TABLET ONCE IN A WHILE, (TO EQUAL A 105MG DOSE)

REACTIONS (8)
  - Meningitis bacterial [Unknown]
  - Encephalitis [Unknown]
  - Hospitalisation [Unknown]
  - Ankle operation [Unknown]
  - Hypothyroidism [Unknown]
  - Pruritus [Not Recovered/Not Resolved]
  - Rash [Not Recovered/Not Resolved]
  - Product quality issue [Not Recovered/Not Resolved]

NARRATIVE: CASE EVENT DATE: 20210101
